FAERS Safety Report 21334704 (Version 1)
Quarter: 2022Q3

REPORT INFORMATION
  Report Type: Spontaneous
  Country: US (occurrence: US)
  Receive Date: 20220914
  Receipt Date: 20220914
  Transmission Date: 20221027
  Serious: Yes (Hospitalization, Other)
  Sender: FDA-Public Use
  Company Number: US-SLATE RUN PHARMACEUTICALS-22US001323

PATIENT

DRUGS (2)
  1. VANCOMYCIN HYDROCHLORIDE [Suspect]
     Active Substance: VANCOMYCIN HYDROCHLORIDE
     Indication: Endocarditis staphylococcal
     Dosage: UNK
     Route: 042
  2. VANCOMYCIN HYDROCHLORIDE [Suspect]
     Active Substance: VANCOMYCIN HYDROCHLORIDE
     Dosage: UNK
     Route: 042
     Dates: start: 202112

REACTIONS (9)
  - Cardiac valve vegetation [Recovered/Resolved]
  - Treatment failure [Recovered/Resolved]
  - Arthralgia [Recovered/Resolved]
  - Cutaneous vasculitis [Recovered/Resolved]
  - Septic pulmonary embolism [Recovered/Resolved]
  - Chest wall abscess [Recovered/Resolved]
  - Osteomyelitis [Recovered/Resolved]
  - Cryoglobulinaemia [Recovered/Resolved]
  - Adverse drug reaction [Recovered/Resolved]

NARRATIVE: CASE EVENT DATE: 20220201
